FAERS Safety Report 9037475 (Version 1)
Quarter: 2013Q1

REPORT INFORMATION
  Report Type: Spontaneous
  Country: US (occurrence: None)
  Receive Date: 20130123
  Receipt Date: 20130123
  Transmission Date: 20140127
  Serious: Yes (Other)
  Sender: FDA-Public Use
  Company Number: None

PATIENT
  Age: 61 Year
  Sex: Male
  Weight: 81.65 kg

DRUGS (1)
  1. LISINOPRIL, 20 MG, AMERICAN HEALTH [Suspect]
     Indication: HYPERTENSION
     Route: 048
     Dates: start: 20130116, end: 20130117

REACTIONS (1)
  - Angioedema [None]
